FAERS Safety Report 15639612 (Version 10)
Quarter: 2020Q3

REPORT INFORMATION
  Report Type: Report from Study
  Country: AU (occurrence: AU)
  Receive Date: 20181120
  Receipt Date: 20200810
  Transmission Date: 20201105
  Serious: Yes (Hospitalization)
  Sender: FDA-Public Use
  Company Number: AU-ROCHE-2203520

PATIENT
  Age: 58 Year
  Sex: Male
  Weight: 79.8 kg

DRUGS (23)
  1. FILGRASTIM [Concomitant]
     Active Substance: FILGRASTIM
     Dates: start: 20181019, end: 20181019
  2. POLATUZUMAB VEDOTIN. [Suspect]
     Active Substance: POLATUZUMAB VEDOTIN
     Indication: B-CELL LYMPHOMA
     Dosage: ON 03/OCT/2018, HE RECEIVED MOST RECENT DOSE 144 MG OF POLATUZUMAB VEDOTIN PRIOR TO AE ONSET.
     Route: 042
     Dates: start: 20180813, end: 20181003
  3. VALTREX [Concomitant]
     Active Substance: VALACYCLOVIR HYDROCHLORIDE
     Dates: start: 20180816, end: 20181021
  4. SODIUM BICARBONATE. [Concomitant]
     Active Substance: SODIUM BICARBONATE
     Indication: STOMATITIS
     Dates: start: 20180815, end: 20180818
  5. SODIUM BICARBONATE. [Concomitant]
     Active Substance: SODIUM BICARBONATE
     Dates: start: 20180819
  6. PARACETAMOL [Concomitant]
     Active Substance: ACETAMINOPHEN
     Indication: ARTHRALGIA
  7. ALLOPURINOL. [Concomitant]
     Active Substance: ALLOPURINOL
     Indication: NEOPLASM PROPHYLAXIS
     Dates: start: 20180727, end: 20181003
  8. VALTREX [Concomitant]
     Active Substance: VALACYCLOVIR HYDROCHLORIDE
     Dates: start: 20181025
  9. GENTAMYCIN [Concomitant]
     Active Substance: GENTAMICIN
     Indication: PYREXIA
     Dates: start: 20181021, end: 20181021
  10. POTASSIUM CHLORIDE. [Concomitant]
     Active Substance: POTASSIUM CHLORIDE
     Indication: BLOOD POTASSIUM DECREASED
     Dates: start: 20181022, end: 20181025
  11. BACTROBAN [Concomitant]
     Active Substance: MUPIROCIN\MUPIROCIN CALCIUM
     Dates: start: 20180923, end: 20180928
  12. VALTREX [Concomitant]
     Active Substance: VALACYCLOVIR HYDROCHLORIDE
     Dates: start: 20181025
  13. FILGRASTIM [Concomitant]
     Active Substance: FILGRASTIM
     Dates: start: 20181115
  14. SODIUM PHOSPHATE [Concomitant]
     Active Substance: SODIUM PHOSPHATE
     Indication: BLOOD SODIUM DECREASED
     Dates: start: 20181022, end: 20181023
  15. FILGRASTIM [Concomitant]
     Active Substance: FILGRASTIM
     Dates: start: 20180927, end: 20180927
  16. VENETOCLAX. [Suspect]
     Active Substance: VENETOCLAX
     Indication: B-CELL LYMPHOMA
     Dosage: ON 20/OCT/2018, HE RECEIVED MOST RECENT DOSE 800 MG OF VENETOCLAX PRIOR TO AE ONSET
     Route: 048
     Dates: start: 20180813, end: 20181020
  17. OBINUTUZUMAB. [Suspect]
     Active Substance: OBINUTUZUMAB
     Indication: B-CELL LYMPHOMA
     Dosage: DAY 1, 8, 15 OF CYCLE 1 AND ON DAY 1 OF CYCLES 2 TO 6 ?ON 03/OCT/2018, HE RECEIVED MOST RECENT DOSE
     Route: 042
     Dates: start: 20180813, end: 20181003
  18. OSELTAMIVIR [Concomitant]
     Active Substance: OSELTAMIVIR
     Indication: PYREXIA
     Dates: start: 20181021, end: 20181021
  19. AUGMENTIN DUO FORTE [Concomitant]
     Active Substance: AMOXICILLIN\CLAVULANATE POTASSIUM
     Dates: start: 20180923, end: 20181002
  20. PARACETAMOL [Concomitant]
     Active Substance: ACETAMINOPHEN
     Indication: PYREXIA
     Dates: start: 20180923
  21. FILGRASTIM [Concomitant]
     Active Substance: FILGRASTIM
     Dates: start: 20181102, end: 20181103
  22. FILGRASTIM [Concomitant]
     Active Substance: FILGRASTIM
     Indication: NEUTROPENIA
     Dates: start: 20181023, end: 20181026
  23. FILGRASTIM [Concomitant]
     Active Substance: FILGRASTIM
     Dates: start: 20181108, end: 20181111

REACTIONS (1)
  - Cellulitis [Recovered/Resolved]

NARRATIVE: CASE EVENT DATE: 20181020
